FAERS Safety Report 25066002 (Version 1)
Quarter: 2025Q1

REPORT INFORMATION
  Report Type: Spontaneous
  Country: JP (occurrence: JP)
  Receive Date: 20250312
  Receipt Date: 20250312
  Transmission Date: 20250409
  Serious: Yes (Hospitalization, Other)
  Sender: ROCHE
  Company Number: JP-CHUGAI-2025007136

PATIENT
  Age: 8 Decade
  Sex: Male

DRUGS (5)
  1. TECENTRIQ [Suspect]
     Active Substance: ATEZOLIZUMAB
     Indication: Small cell lung cancer
     Route: 042
  2. CARBOPLATIN [Concomitant]
     Active Substance: CARBOPLATIN
     Indication: Small cell lung cancer
     Route: 042
  3. ETOPOSIDE [Concomitant]
     Active Substance: ETOPOSIDE
     Indication: Small cell lung cancer
     Route: 042
  4. VONOPRAZAN FUMARATE [Concomitant]
     Active Substance: VONOPRAZAN FUMARATE
     Route: 050
  5. APIXABAN [Concomitant]
     Active Substance: APIXABAN
     Route: 050

REACTIONS (5)
  - Bacillus infection [Unknown]
  - Gastritis bacterial [Recovering/Resolving]
  - Febrile neutropenia [Recovering/Resolving]
  - Acute kidney injury [Recovering/Resolving]
  - Anaemia [Unknown]
